FAERS Safety Report 8533524-6 (Version None)
Quarter: 2012Q3

REPORT INFORMATION
  Report Type: 
  Country: None (occurrence: None)
  Receive Date: 20120724
  Receipt Date: 20120710
  Transmission Date: 20120928
  Serious: Yes (Hospitalization, Other)
  Sender: FDA-Public Use
  Company Number: MX-SANOFI-AVENTIS-2012SA049389

PATIENT
  Age: 80 Year
  Sex: Female
  Weight: 66 kg

DRUGS (4)
  1. BI-EUGLUCON [Concomitant]
     Indication: TYPE 2 DIABETES MELLITUS
     Route: 048
     Dates: start: 20010101
  2. ANTI-LIPIDE [Concomitant]
     Route: 048
     Dates: start: 20090101, end: 20100101
  3. LANTUS [Suspect]
     Route: 058
     Dates: start: 20010101
  4. OTHER ANTIHYPERTENSIVES [Concomitant]
     Indication: HYPERTENSION
     Route: 048
     Dates: start: 20060101

REACTIONS (6)
  - HYPERCHOLESTEROLAEMIA [None]
  - CONDITION AGGRAVATED [None]
  - HYPERTENSION [None]
  - VISION BLURRED [None]
  - MYOCARDIAL INFARCTION [None]
  - MALAISE [None]
